FAERS Safety Report 5006881-5 (Version None)
Quarter: 2006Q2

REPORT INFORMATION
  Report Type: 
  Country: None (occurrence: None)
  Receive Date: 20060516
  Receipt Date: 20060504
  Transmission Date: 20061013
  Serious: Yes (Hospitalization, Disabling, Other)
  Sender: FDA-Public Use
  Company Number: USA-2003-0012149

PATIENT
  Age: 51 Year
  Sex: Male

DRUGS (12)
  1. OXYCONTIN [Suspect]
     Indication: PAIN
     Dosage: SEE TEXT, ORAL
     Route: 048
  2. OXYCODONE HYDROCHLORIDE CR [Concomitant]
  3. DURAGESIC-100 [Concomitant]
  4. PERCOCET [Concomitant]
  5. NEXIUM [Concomitant]
  6. VICODIN [Concomitant]
  7. PROTONIX [Concomitant]
  8. ATIVAN [Concomitant]
  9. TOPROL-XL [Concomitant]
  10. DARVOCET-N (DEXTROPROPOXYPHENE NAPSILATE) [Concomitant]
  11. LOPRESSOR [Concomitant]
  12. LAMISIL [Concomitant]

REACTIONS (34)
  - ABDOMINAL PAIN [None]
  - ANXIETY [None]
  - ARTHRALGIA [None]
  - BACK PAIN [None]
  - BURSITIS [None]
  - CALCULUS URETERIC [None]
  - CHEST PAIN [None]
  - CHILLS [None]
  - CHOLELITHIASIS [None]
  - CONSTIPATION [None]
  - DEPRESSION [None]
  - DISTURBANCE IN ATTENTION [None]
  - DRUG DEPENDENCE [None]
  - DRUG WITHDRAWAL SYNDROME [None]
  - DYSPEPSIA [None]
  - FATIGUE [None]
  - FLANK PAIN [None]
  - HYDRONEPHROSIS [None]
  - HYPERTENSION [None]
  - INADEQUATE ANALGESIA [None]
  - INCORRECT DOSE ADMINISTERED [None]
  - INTENTIONAL DRUG MISUSE [None]
  - JOINT RANGE OF MOTION DECREASED [None]
  - LACRIMATION INCREASED [None]
  - MYALGIA [None]
  - NAUSEA [None]
  - ONYCHOMYCOSIS [None]
  - PAIN [None]
  - POST INFLAMMATORY PIGMENTATION CHANGE [None]
  - SLEEP DISORDER [None]
  - TENDERNESS [None]
  - TENDON INJURY [None]
  - TENDON RUPTURE [None]
  - VOMITING [None]
